FAERS Safety Report 8227433-X (Version None)
Quarter: 2012Q1

REPORT INFORMATION
  Report Type: 
  Country: None (occurrence: None)
  Receive Date: 20120322
  Receipt Date: 20120314
  Transmission Date: 20120608
  Serious: Yes (Hospitalization, Other)
  Sender: FDA-Public Use
  Company Number: US-BAYER-2011-050945

PATIENT
  Age: 34 Year
  Sex: Female
  Weight: 61.224 kg

DRUGS (10)
  1. DROSPIRENONE AND ETHINYL ESTRADIOL [Suspect]
     Indication: CONTRACEPTION
     Dosage: UNK
     Dates: start: 20020101, end: 20100101
  2. YASMIN [Suspect]
     Indication: CONTRACEPTION
     Dosage: UNK
     Dates: start: 20020101, end: 20100101
  3. FROVA [Concomitant]
     Dosage: UNK
     Dates: start: 19920101
  4. PREVACID [Concomitant]
     Dosage: UNK
  5. ALLEGRA [Concomitant]
  6. DROSPIRENONE AND ETHINYL ESTRADIOL [Suspect]
     Indication: MENSTRUAL CYCLE MANAGEMENT
  7. YAZ [Suspect]
     Indication: MENSTRUAL CYCLE MANAGEMENT
  8. YASMIN [Suspect]
     Indication: MENSTRUAL CYCLE MANAGEMENT
  9. YAZ [Suspect]
     Indication: CONTRACEPTION
     Dosage: UNK
     Dates: start: 20020101, end: 20100101
  10. IMITREX [Concomitant]
     Dosage: UNK
     Dates: start: 19920101

REACTIONS (8)
  - DIARRHOEA [None]
  - EMOTIONAL DISTRESS [None]
  - MALNUTRITION [None]
  - CHOLECYSTITIS CHRONIC [None]
  - GALLBLADDER DISORDER [None]
  - STRESS [None]
  - PAIN [None]
  - HEPATIC NEOPLASM [None]
